FAERS Safety Report 16616236 (Version 1)
Quarter: 2019Q3

REPORT INFORMATION
  Report Type: Spontaneous
  Country: ES (occurrence: ES)
  Receive Date: 20190723
  Receipt Date: 20190723
  Transmission Date: 20191004
  Serious: Yes (Congenital Anomaly)
  Sender: FDA-Public Use
  Company Number: ES-ACCORD-146249

PATIENT
  Age: 25 Day
  Sex: Female

DRUGS (6)
  1. INFANRIX [Concomitant]
     Active Substance: DIPHTHERIA AND TETANUS TOXOIDS AND ACELLULAR PERTUSSIS VACCINE ADSORBED PF
     Indication: IMMUNISATION
     Route: 064
     Dates: start: 20190425, end: 20190425
  2. DICLOFENAC [Concomitant]
     Active Substance: DICLOFENAC
     Indication: MIGRAINE
     Route: 064
     Dates: start: 20190302, end: 20190302
  3. YODOCEFOL [Concomitant]
     Active Substance: CYANOCOBALAMIN\FOLIC ACID\POTASSIUM IODIDE
     Indication: PREGNANCY
     Route: 064
     Dates: start: 20181025
  4. FERPLEX [Concomitant]
     Indication: PREGNANCY
     Route: 064
     Dates: start: 20180123
  5. SERTRALINE [Suspect]
     Active Substance: SERTRALINE HYDROCHLORIDE
     Indication: SOCIAL ANXIETY DISORDER
     Route: 064
     Dates: start: 20180809, end: 20190616
  6. VAXIGRIP [Concomitant]
     Active Substance: INFLUENZA VIRUS VACCINE
     Indication: IMMUNISATION
     Route: 064
     Dates: start: 20181029, end: 20181029

REACTIONS (2)
  - Femur-fibula-ulna complex [Not Recovered/Not Resolved]
  - Foetal exposure during pregnancy [Unknown]

NARRATIVE: CASE EVENT DATE: 201808
